FAERS Safety Report 17670042 (Version 5)
Quarter: 2022Q2

REPORT INFORMATION
  Report Type: Spontaneous
  Country: US (occurrence: US)
  Receive Date: 20200415
  Receipt Date: 20220503
  Transmission Date: 20220721
  Serious: No
  Sender: FDA-Public Use
  Company Number: US-PFIZER INC-2020153897

PATIENT
  Age: 65 Year
  Sex: Female
  Weight: 72.57 kg

DRUGS (3)
  1. PREGABALIN [Suspect]
     Active Substance: PREGABALIN
     Dosage: UNK
  2. PREGABALIN [Suspect]
     Active Substance: PREGABALIN
     Dosage: 200 MG
  3. PREGABALIN [Suspect]
     Active Substance: PREGABALIN
     Dosage: UNK

REACTIONS (5)
  - Drug ineffective [Unknown]
  - Product dispensing error [Unknown]
  - Nausea [Unknown]
  - Illness [Unknown]
  - Speech disorder [Unknown]
